FAERS Safety Report 8266941-2 (Version None)
Quarter: 2012Q2

REPORT INFORMATION
  Report Type: 
  Country: None (occurrence: None)
  Receive Date: 20120404
  Receipt Date: 20120404
  Transmission Date: 20120825
  Serious: Yes (Hospitalization)
  Sender: FDA-Public Use
  Company Number: None

PATIENT
  Age: 78 Year
  Sex: Male
  Weight: 85 kg

DRUGS (15)
  1. GEMFIBROZIL [Concomitant]
  2. METOPROLOL SUCCINATE [Concomitant]
  3. M.V.I. [Concomitant]
  4. ASPIRIN [Suspect]
     Indication: AORTIC VALVE REPLACEMENT
     Dosage: 81MG DAILY PO CHRONIC
     Route: 048
  5. CA + VIT D [Concomitant]
  6. VITAMIN B-12 [Concomitant]
  7. LATANOPROST [Concomitant]
  8. FERROUS SULFATE TAB [Concomitant]
  9. SIMVASTATIN [Concomitant]
  10. WARFARIN SODIUM [Suspect]
     Indication: ATRIAL FIBRILLATION
     Dosage: 7MG W PO   6MG SSMTHF PO CHRONIC
     Route: 048
  11. WARFARIN SODIUM [Suspect]
     Indication: CARDIAC PACEMAKER INSERTION
     Dosage: 7MG W PO   6MG SSMTHF PO CHRONIC
     Route: 048
  12. LASIX [Concomitant]
  13. BRINZOLAMIDE [Concomitant]
  14. POTASSIUM CHLORIDE [Concomitant]
  15. ENALAPRIL MALEATE [Concomitant]

REACTIONS (4)
  - ANAEMIA [None]
  - GASTROINTESTINAL HAEMORRHAGE [None]
  - INTERNATIONAL NORMALISED RATIO INCREASED [None]
  - RECTAL HAEMORRHAGE [None]
